FAERS Safety Report 9167922 (Version 1)
Quarter: 2013Q1

REPORT INFORMATION
  Report Type: Spontaneous
  Country: MX (occurrence: None)
  Receive Date: 20130307
  Receipt Date: 20130307
  Transmission Date: 20140127
  Serious: Yes (Other)
  Sender: FDA-Public Use
  Company Number: ENTC2013-0077

PATIENT
  Age: 72 Year
  Sex: Male

DRUGS (1)
  1. STALEVO (LEVODOPA, CARBIDOPA, ENTACAPONE) [Suspect]
     Indication: PARKINSON^S DISEASE
     Dosage: 4 DF, (50/12.5/200 MG), DAILY
     Route: 048
     Dates: start: 20101017

REACTIONS (2)
  - Neoplasm malignant [None]
  - Speech disorder [None]
